FAERS Safety Report 13156432 (Version 1)
Quarter: 2017Q1

REPORT INFORMATION
  Report Type: Spontaneous
  Country: BR (occurrence: BR)
  Receive Date: 20170126
  Receipt Date: 20170126
  Transmission Date: 20170428
  Serious: Yes (Hospitalization)
  Sender: FDA-Public Use
  Company Number: ALCN2017BR000804

PATIENT
  Sex: Female
  Weight: 74 kg

DRUGS (1)
  1. VITALUX PLUS [Suspect]
     Active Substance: VITAMINS
     Indication: EYE DISORDER
     Dosage: 1 DF, QHS (AT NIGHT)
     Route: 065
     Dates: end: 2016

REACTIONS (2)
  - Vomiting [Recovered/Resolved]
  - Nausea [Unknown]
